FAERS Safety Report 4950795-3 (Version None)
Quarter: 2006Q1

REPORT INFORMATION
  Report Type: 
  Country: None (occurrence: None)
  Receive Date: 20060321
  Receipt Date: 20060321
  Transmission Date: 20060701
  Serious: Yes (Death)
  Sender: FDA-Public Use
  Company Number: None

PATIENT
  Age: 62 Year
  Sex: Male
  Weight: 77.1115 kg

DRUGS (2)
  1. PROZAC [Suspect]
     Indication: DEPRESSION
     Dosage: 20 MG 1X DAY @ 8AM PO
     Route: 048
     Dates: start: 20060222, end: 20060303
  2. REMERON [Suspect]
     Indication: ANXIETY
     Dosage: 15 MG. 1X DAY @8PM PO
     Route: 048
     Dates: start: 20060222, end: 20060302

REACTIONS (2)
  - COMPLETED SUICIDE [None]
  - THERAPY REGIMEN CHANGED [None]
